FAERS Safety Report 10255687 (Version 2)
Quarter: 2014Q3

REPORT INFORMATION
  Report Type: Spontaneous
  Country: FI (occurrence: FI)
  Receive Date: 20140624
  Receipt Date: 20140814
  Transmission Date: 20150326
  Serious: No
  Sender: FDA-Public Use
  Company Number: PHHY2014FI077650

PATIENT
  Age: 22 Year
  Sex: Female
  Weight: 60.7 kg

DRUGS (4)
  1. TASIGNA [Suspect]
     Active Substance: NILOTINIB
     Dosage: 400 MG, BID
     Dates: end: 20131128
  2. ZINACEF [Suspect]
     Active Substance: CEFUROXIME SODIUM
     Dosage: 1.5 G, TID
     Route: 042
  3. TASIGNA [Suspect]
     Active Substance: NILOTINIB
     Indication: CHRONIC MYELOID LEUKAEMIA
     Dosage: 300 MG, BID
     Dates: start: 2011
  4. INTRON A [Suspect]
     Active Substance: INTERFERON ALFA-2B
     Indication: LEUKAEMIA
     Dosage: 3MILJ X1X6 /WEEK

REACTIONS (17)
  - Normal newborn [Unknown]
  - Dyspepsia [Unknown]
  - Affective disorder [Unknown]
  - C-reactive protein increased [Unknown]
  - Blood pressure decreased [Unknown]
  - Nausea [Unknown]
  - Depression [Unknown]
  - Blood lactate dehydrogenase increased [Unknown]
  - Gait disturbance [Unknown]
  - Pain [Unknown]
  - Blood urine present [Unknown]
  - Heart rate increased [Unknown]
  - Maternal exposure during pregnancy [Unknown]
  - Haemorrhage [Unknown]
  - Dysuria [Unknown]
  - Blood alkaline phosphatase increased [Unknown]
  - Post procedural discharge [Unknown]

NARRATIVE: CASE EVENT DATE: 20131125
